FAERS Safety Report 8125657-3 (Version None)
Quarter: 2012Q1

REPORT INFORMATION
  Report Type: 
  Country: None (occurrence: None)
  Receive Date: 20120209
  Receipt Date: 20120130
  Transmission Date: 20120608
  Serious: Yes (Death, Hospitalization)
  Sender: FDA-Public Use
  Company Number: PH-BAXTER-2012BH003242

PATIENT
  Age: 7 Year
  Sex: Female

DRUGS (1)
  1. DIANEAL [Suspect]
     Indication: PERITONEAL DIALYSIS
     Route: 033
     Dates: start: 20111228

REACTIONS (3)
  - CARDIAC ARREST [None]
  - LUPUS NEPHRITIS [None]
  - MULTI-ORGAN FAILURE [None]
